FAERS Safety Report 8074681-8 (Version None)
Quarter: 2012Q1

REPORT INFORMATION
  Report Type: 
  Country: None (occurrence: None)
  Receive Date: 20120126
  Receipt Date: 20120112
  Transmission Date: 20120608
  Serious: Yes (Other)
  Sender: FDA-Public Use
  Company Number: CN-BAUSCH-2011BL009059

PATIENT
  Age: 18 Year
  Sex: Male

DRUGS (4)
  1. LOTEMAX [Suspect]
     Route: 047
     Dates: start: 20110917, end: 20110923
  2. LOTEMAX [Suspect]
     Route: 047
     Dates: start: 20110910, end: 20110916
  3. LOTEMAX [Suspect]
     Route: 047
     Dates: start: 20110924, end: 20110930
  4. LOTEMAX [Suspect]
     Indication: POSTOPERATIVE CARE
     Route: 047
     Dates: start: 20110902, end: 20110909

REACTIONS (1)
  - OPEN ANGLE GLAUCOMA [None]
